FAERS Safety Report 7420689-2 (Version None)
Quarter: 2011Q2

REPORT INFORMATION
  Report Type: 
  Country: None (occurrence: None)
  Receive Date: 20110418
  Receipt Date: 20101116
  Transmission Date: 20111010
  Serious: Yes (Hospitalization, Other)
  Sender: FDA-Public Use
  Company Number: US-BAYER-201020094NA

PATIENT
  Age: 32 Year
  Sex: Female
  Weight: 79 kg

DRUGS (5)
  1. LEXAPRO [Concomitant]
     Indication: ANXIETY
     Dosage: UNK
     Dates: start: 20070101
  2. YAZ [Suspect]
     Dosage: UNK
     Dates: start: 20071101, end: 20071201
  3. YAZ [Suspect]
     Indication: PREMENSTRUAL SYNDROME
     Dosage: UNK
     Route: 048
     Dates: start: 20071101, end: 20071201
  4. ALBUTEROL SULFATE [Concomitant]
     Indication: ASTHMA
     Dosage: UNK
     Dates: start: 20060101, end: 20100101
  5. LEXAPRO [Concomitant]
     Indication: DEPRESSION

REACTIONS (5)
  - GALLBLADDER INJURY [None]
  - PANCREATITIS [None]
  - CHOLECYSTITIS CHRONIC [None]
  - JAUNDICE [None]
  - CHOLELITHIASIS [None]
